FAERS Safety Report 7209757-8 (Version None)
Quarter: 2011Q1

REPORT INFORMATION
  Report Type: 
  Country: None (occurrence: None)
  Receive Date: 20110104
  Receipt Date: 20101231
  Transmission Date: 20110831
  Serious: Yes (Death)
  Sender: FDA-Public Use
  Company Number: US-ASTRAZENECA-2011SE00097

PATIENT
  Age: 10 Year
  Sex: Male

DRUGS (10)
  1. QUETIAPINE [Suspect]
     Route: 048
  2. CLONAZEPAM [Suspect]
     Route: 048
  3. OMEPRAZOLE [Suspect]
     Route: 048
  4. RISPERIDONE [Suspect]
     Route: 048
  5. LORATADINE [Suspect]
     Route: 048
  6. LORAZEPAM [Suspect]
     Route: 048
  7. ATOMEXETINE [Suspect]
     Route: 048
  8. METHYLPHENIDATE [Suspect]
     Route: 048
  9. ALPRAZOLAM [Suspect]
     Route: 048
  10. VALPROIC ACID [Suspect]
     Route: 048

REACTIONS (2)
  - TOXICITY TO VARIOUS AGENTS [None]
  - CARDIO-RESPIRATORY ARREST [None]
